FAERS Safety Report 7904897-X (Version None)
Quarter: 2011Q4

REPORT INFORMATION
  Report Type: 
  Country: None (occurrence: None)
  Receive Date: 20111109
  Receipt Date: 20111031
  Transmission Date: 20120403
  Serious: Yes (Other)
  Sender: FDA-Public Use
  Company Number: PHHY2011JP33604

PATIENT
  Sex: Male
  Weight: 53 kg

DRUGS (20)
  1. AFINITOR [Suspect]
     Dosage: 5 MG, DAILY
     Route: 048
     Dates: start: 20110831, end: 20110914
  2. AFINITOR [Suspect]
     Dosage: 5 MG, DAILY
     Route: 048
     Dates: start: 20110921, end: 20111005
  3. DIOVAN [Concomitant]
     Dosage: 80 MG, UNK
     Route: 048
  4. CARNACULIN [Concomitant]
     Dosage: 3 DF, UNK
     Route: 048
  5. AFINITOR [Suspect]
     Dosage: 5 MG, DAILY
     Route: 048
     Dates: start: 20110615, end: 20110628
  6. AFINITOR [Suspect]
     Dosage: 5 MG, DAILY
     Route: 048
     Dates: start: 20110713, end: 20110803
  7. SELBEX [Concomitant]
     Dosage: 3 DF, UNK
     Route: 048
  8. SALOBEL [Concomitant]
     Dosage: 1 DF, UNK
     Route: 048
  9. CILOSTAZOL [Concomitant]
     Dosage: 2 DF, UNK
     Route: 048
  10. LEVOTHYROXINE SODIUM [Concomitant]
     Dosage: 20 UG, UNK
     Route: 048
  11. AFINITOR [Suspect]
     Dosage: 5 MG, DAILY
     Route: 048
     Dates: start: 20110209, end: 20110213
  12. AFINITOR [Suspect]
     Dosage: 5 MG, DAILY
     Route: 048
     Dates: start: 20110318, end: 20110608
  13. ASPIRIN [Concomitant]
     Dosage: 1 DF, UNK
     Route: 048
  14. AFINITOR [Suspect]
     Indication: METASTATIC RENAL CELL CARCINOMA
     Dosage: 10 MG, DAILY
     Route: 048
     Dates: start: 20101208, end: 20101219
  15. AMLODIPINE [Concomitant]
     Dosage: 1 DF, UNK
     Route: 048
  16. AFINITOR [Suspect]
     Dosage: 5 MG, DAILY
     Route: 048
     Dates: start: 20110105, end: 20110126
  17. TENORMIN [Concomitant]
     Dosage: 1 DF, UNK
     Route: 048
  18. AFINITOR [Suspect]
     Dosage: 5 MG, DAILY
     Route: 048
     Dates: start: 20110215, end: 20110305
  19. AFINITOR [Suspect]
     Dosage: 5 MG, DAILY
     Route: 048
     Dates: start: 20110810, end: 20110824
  20. LEVOTHYROXINE SODIUM [Concomitant]
     Dosage: 50 UG, UNK
     Route: 048

REACTIONS (5)
  - BLOOD AMYLASE INCREASED [None]
  - PNEUMONITIS [None]
  - PYREXIA [None]
  - RENAL IMPAIRMENT [None]
  - DIARRHOEA [None]
